FAERS Safety Report 10678594 (Version 1)
Quarter: 2014Q4

REPORT INFORMATION
  Report Type: Spontaneous
  Country: FR (occurrence: FR)
  Receive Date: 20141229
  Receipt Date: 20141229
  Transmission Date: 20150529
  Serious: Yes (Hospitalization)
  Sender: FDA-Public Use
  Company Number: FR-SA-2014SA178040

PATIENT
  Age: 44 Year
  Sex: Female

DRUGS (8)
  1. LEPTICUR [Suspect]
     Active Substance: TROPATEPINE HYDROCHLORIDE
     Dosage: 0.5
     Route: 065
  2. VALIUM [Suspect]
     Active Substance: DIAZEPAM
     Route: 065
  3. XEROQUEL [Suspect]
     Active Substance: QUETIAPINE FUMARATE
     Indication: PSYCHOMOTOR HYPERACTIVITY
     Route: 048
     Dates: start: 20141202, end: 20141204
  4. DEPAKINE [Suspect]
     Active Substance: VALPROATE SODIUM
     Route: 048
  5. CLOPIXOL [Suspect]
     Active Substance: ZUCLOPENTHIXOL ACETATE
     Route: 065
  6. GARDENAL [Suspect]
     Active Substance: PHENOBARBITAL
     Route: 048
  7. XEROQUEL [Suspect]
     Active Substance: QUETIAPINE FUMARATE
     Indication: PSYCHOMOTOR HYPERACTIVITY
     Route: 048
     Dates: start: 20141027, end: 20141202
  8. STILNOX [Suspect]
     Active Substance: ZOLPIDEM TARTRATE
     Route: 048

REACTIONS (1)
  - Hepatitis acute [Recovering/Resolving]

NARRATIVE: CASE EVENT DATE: 20141104
